FAERS Safety Report 16188811 (Version 1)
Quarter: 2019Q2

REPORT INFORMATION
  Report Type: Spontaneous
  Country: US (occurrence: US)
  Receive Date: 20190412
  Receipt Date: 20190412
  Transmission Date: 20190711
  Serious: Yes (Hospitalization)
  Sender: FDA-Public Use
  Company Number: US-PTC THERAPEUTICS, INC.-US-2019PTC000649

PATIENT

DRUGS (1)
  1. EMFLAZA [Suspect]
     Active Substance: DEFLAZACORT
     Indication: OSTEOPOROSIS
     Dosage: 6 MG, QD
     Route: 048

REACTIONS (4)
  - Pyrexia [Unknown]
  - Dehydration [Unknown]
  - Product use in unapproved indication [Unknown]
  - Upper respiratory tract infection [Unknown]
